FAERS Safety Report 6202433-X (Version None)
Quarter: 2009Q2

REPORT INFORMATION
  Report Type: 
  Country: None (occurrence: None)
  Receive Date: 20090521
  Receipt Date: 20090521
  Transmission Date: 20091009
  Serious: Yes (Other)
  Sender: FDA-Public Use
  Company Number: None

PATIENT
  Sex: Female
  Weight: 95.2554 kg

DRUGS (1)
  1. PRISTIQ [Suspect]
     Indication: DEPRESSION
     Dosage: 50 MG 1 A DAY TABLET
     Dates: start: 20090121, end: 20090216

REACTIONS (5)
  - CONTUSION [None]
  - HYPERPHAGIA [None]
  - MENORRHAGIA [None]
  - SOMNOLENCE [None]
  - WEIGHT INCREASED [None]
